FAERS Safety Report 5170818-9 (Version None)
Quarter: 2006Q4

REPORT INFORMATION
  Report Type: 
  Country: None (occurrence: None)
  Receive Date: 20061206
  Receipt Date: 20061206
  Transmission Date: 20070319
  Serious: No
  Sender: FDA-Public Use
  Company Number: None

PATIENT
  Age: 76 Year
  Sex: Female
  Weight: 63.5036 kg

DRUGS (2)
  1. ARANESP [Suspect]
     Indication: ANAEMIA
     Dosage: 200MCG 2XMONTH SQ
     Route: 058
     Dates: start: 20060701, end: 20061031
  2. ARANESP [Suspect]
     Indication: ANAEMIA
     Dosage: 200MCG 2XMONTH SQ
     Route: 058
     Dates: start: 20061122, end: 20061205

REACTIONS (4)
  - DRUG DOSE OMISSION [None]
  - INJECTION SITE HAEMORRHAGE [None]
  - MEDICAL DEVICE COMPLICATION [None]
  - PHARMACEUTICAL PRODUCT COMPLAINT [None]
